FAERS Safety Report 4920136-6 (Version None)
Quarter: 2006Q1

REPORT INFORMATION
  Report Type: 
  Country: None (occurrence: None)
  Receive Date: 20060223
  Receipt Date: 20060209
  Transmission Date: 20060701
  Serious: Yes (Death, Other)
  Sender: FDA-Public Use
  Company Number: US-AMGEN-US164144

PATIENT
  Age: 77 Year
  Sex: Male

DRUGS (17)
  1. EPOGEN [Suspect]
     Indication: DIALYSIS
     Dates: start: 20050127
  2. ASPIRIN ENTERIC COATED K.P. [Concomitant]
  3. SINEMET [Concomitant]
  4. RESTORIL [Concomitant]
  5. PROAMATINE [Concomitant]
  6. AMIODARONE [Concomitant]
  7. FOLIC ACID [Concomitant]
  8. LIPITOR [Concomitant]
  9. LOPRESSOR [Concomitant]
  10. PRILOSEC [Concomitant]
  11. ZOFRAN [Concomitant]
  12. MAGNESIUM OXIDE [Concomitant]
  13. MIDODRINE HCL [Concomitant]
  14. PHOSLO [Concomitant]
  15. COUMADIN [Concomitant]
  16. FERRLECIT TABLET [Concomitant]
  17. ZEMPLAR [Concomitant]

REACTIONS (4)
  - ABDOMINAL ABSCESS [None]
  - BACTERIAL INFECTION [None]
  - IRON DEFICIENCY ANAEMIA [None]
  - THERAPEUTIC RESPONSE DECREASED [None]
